FAERS Safety Report 8476183-3 (Version None)
Quarter: 2012Q2

REPORT INFORMATION
  Report Type: 
  Country: None (occurrence: None)
  Receive Date: 20120622
  Receipt Date: 20120605
  Transmission Date: 20120825
  Serious: Yes (Hospitalization)
  Sender: FDA-Public Use
  Company Number: ACO_30739_2012

PATIENT
  Age: 61 Year
  Sex: Male

DRUGS (7)
  1. SIMVASTATIN [Concomitant]
  2. VENLAFAXINE HCL [Concomitant]
  3. FAMPYRA (DALFAMPRIDINE) TABLET, 10MG [Suspect]
     Indication: MULTIPLE SCLEROSIS
     Dosage: 10 MG, BID, ORAL
     Route: 048
     Dates: start: 20120401
  4. FAMPYRA (DALFAMPRIDINE) TABLET, 10MG [Suspect]
     Indication: MULTIPLE SCLEROSIS
     Dosage: 10 MG, BID, ORAL
     Route: 048
     Dates: start: 20120115, end: 20120401
  5. TRIMIPRAMINE MALEATE [Concomitant]
  6. SPASMEX /00376202/ (TROSPIUM CHLORIDE) [Concomitant]
  7. TAMSULOSIN HCL [Concomitant]

REACTIONS (2)
  - TREMOR [None]
  - GAIT DISTURBANCE [None]
